FAERS Safety Report 4958212-4 (Version None)
Quarter: 2006Q1

REPORT INFORMATION
  Report Type: 
  Country: None (occurrence: None)
  Receive Date: 20060330
  Receipt Date: 20060323
  Transmission Date: 20060701
  Serious: Yes (Hospitalization)
  Sender: FDA-Public Use
  Company Number: US-ROCHE-441850

PATIENT
  Age: 58 Year
  Sex: Female

DRUGS (2)
  1. BONIVA [Suspect]
     Indication: OSTEOPOROSIS
     Route: 048
     Dates: start: 20051115
  2. MORPHINE PUMP [Concomitant]
     Indication: PAIN
     Route: 065

REACTIONS (3)
  - FALL [None]
  - FOOT FRACTURE [None]
  - UPPER LIMB FRACTURE [None]
